FAERS Safety Report 5730520-9 (Version None)
Quarter: 2008Q2

REPORT INFORMATION
  Report Type: 
  Country: None (occurrence: None)
  Receive Date: 20080507
  Receipt Date: 20080505
  Transmission Date: 20081010
  Serious: Yes (Other)
  Sender: FDA-Public Use
  Company Number: A0702723A

PATIENT
  Sex: Female
  Weight: 82.7 kg

DRUGS (1)
  1. ALLI [Suspect]
     Indication: DRUG USE FOR UNKNOWN INDICATION

REACTIONS (11)
  - ANXIETY [None]
  - ASTHENIA [None]
  - DEPRESSION [None]
  - DYSGEUSIA [None]
  - EMOTIONAL DISORDER [None]
  - FEELING ABNORMAL [None]
  - INSOMNIA [None]
  - SINUSITIS [None]
  - THYROID DISORDER [None]
  - THYROID NEOPLASM [None]
  - WEIGHT INCREASED [None]
